FAERS Safety Report 4330134-1 (Version None)
Quarter: 2004Q2

REPORT INFORMATION
  Report Type: 
  Country: None (occurrence: None)
  Receive Date: 20040402
  Receipt Date: 20040322
  Transmission Date: 20050107
  Serious: Yes (Death)
  Sender: FDA-Public Use
  Company Number: 200410967JP

PATIENT
  Age: 72 Year
  Sex: Male

DRUGS (3)
  1. TAXOTERE [Suspect]
     Indication: NON-SMALL CELL LUNG CANCER
     Route: 041
  2. CARBOPLATIN [Suspect]
     Indication: NON-SMALL CELL LUNG CANCER
  3. RADIATION [Suspect]
     Indication: NON-SMALL CELL LUNG CANCER

REACTIONS (2)
  - INTERSTITIAL LUNG DISEASE [None]
  - RADIATION PNEUMONITIS [None]
